FAERS Safety Report 7731565-X (Version None)
Quarter: 2011Q3

REPORT INFORMATION
  Report Type: 
  Country: None (occurrence: None)
  Receive Date: 20110906
  Receipt Date: 20110824
  Transmission Date: 20111222
  Serious: Yes (Other)
  Sender: FDA-Public Use
  Company Number: US-BAYER-2011-078565

PATIENT
  Age: 55 Year
  Sex: Female
  Weight: 66 kg

DRUGS (3)
  1. SYNTHROID [Concomitant]
  2. NEO-SYNEPHRINE REGULAR STRENGTH [Suspect]
     Dosage: COUNT SIZE 5 OZ
     Route: 045
     Dates: start: 20110823, end: 20110823
  3. CYCLOSPORINE [Concomitant]

REACTIONS (3)
  - THROAT TIGHTNESS [None]
  - OROPHARYNGEAL DISCOMFORT [None]
  - PHARYNGEAL OEDEMA [None]
